FAERS Safety Report 11087577 (Version 1)
Quarter: 2015Q2

REPORT INFORMATION
  Report Type: Spontaneous
  Country: US (occurrence: None)
  Receive Date: 20150501
  Receipt Date: 20150501
  Transmission Date: 20150821
  Serious: No
  Sender: FDA-Public Use
  Company Number: None

PATIENT
  Age: 28 Year
  Sex: Male
  Weight: 117.94 kg

DRUGS (1)
  1. LEXAPRO [Suspect]
     Active Substance: ESCITALOPRAM OXALATE
     Indication: DEPRESSION
     Dosage: 5MG, ONCE DAILY, TAKEN BY MOUTH
     Route: 048

REACTIONS (4)
  - Tremor [None]
  - Fatigue [None]
  - Nausea [None]
  - Headache [None]

NARRATIVE: CASE EVENT DATE: 20150429
